FAERS Safety Report 14759776 (Version 1)
Quarter: 2018Q2

REPORT INFORMATION
  Report Type: Report from Study
  Country: DE (occurrence: DE)
  Receive Date: 20180413
  Receipt Date: 20180413
  Transmission Date: 20180711
  Serious: Yes (Other)
  Sender: FDA-Public Use
  Company Number: DE-TEVA-2018-DE-879782

PATIENT
  Sex: Female

DRUGS (1)
  1. COPAXONE [Suspect]
     Active Substance: GLATIRAMER ACETATE
     Indication: MULTIPLE SCLEROSIS
     Dates: start: 20150606

REACTIONS (8)
  - Throat tightness [Unknown]
  - Nausea [Unknown]
  - Immediate post-injection reaction [Unknown]
  - Throat irritation [Unknown]
  - Diarrhoea [Unknown]
  - Chills [Unknown]
  - Vomiting [Unknown]
  - Dizziness [Unknown]
